FAERS Safety Report 6296925-5 (Version None)
Quarter: 2009Q3

REPORT INFORMATION
  Report Type: 
  Country: None (occurrence: None)
  Receive Date: 20090727
  Receipt Date: 20090713
  Transmission Date: 20100115
  Serious: Yes (Death, Life-Threatening, Hospitalization, Other)
  Sender: FDA-Public Use
  Company Number: THYM-1001085

PATIENT
  Age: 35 Year
  Sex: Male
  Weight: 59 kg

DRUGS (6)
  1. THYMOGLOBULIN [Suspect]
     Indication: APLASTIC ANAEMIA
     Dosage: 200 MG, QD, INTRAVENOUS
     Route: 042
     Dates: start: 20090625, end: 20090627
  2. METHYLPREDNISOLONE SODIUM SUCCINATE [Concomitant]
  3. CYCLOSPORINE [Concomitant]
  4. FILGRASTIIM (FILGRASTIM) [Concomitant]
  5. CEFEPIME DIHYDROCHLORIDE (CEFEPIME DIHYDROCHLORIDE) [Concomitant]
  6. PREDNISOLONE SODIUM SUCCINATE INJ [Concomitant]

REACTIONS (17)
  - BLOOD PRESSURE DECREASED [None]
  - CARDIAC ARREST [None]
  - CARDIOMYOPATHY [None]
  - DIARRHOEA HAEMORRHAGIC [None]
  - DRUG TOXICITY [None]
  - FAT TISSUE INCREASED [None]
  - GASTROINTESTINAL HAEMORRHAGE [None]
  - HYPOVOLAEMIC SHOCK [None]
  - INFECTION [None]
  - INTRA-ABDOMINAL HAEMORRHAGE [None]
  - LABORATORY TEST ABNORMAL [None]
  - NAUSEA [None]
  - PAIN [None]
  - PLATELET COUNT DECREASED [None]
  - RENAL FAILURE ACUTE [None]
  - SEPSIS [None]
  - VOMITING [None]
